FAERS Safety Report 15995642 (Version 1)
Quarter: 2019Q1

REPORT INFORMATION
  Report Type: Spontaneous
  Country: US (occurrence: US)
  Receive Date: 20190129
  Receipt Date: 20190129
  Transmission Date: 20190418
  Serious: Yes (Hospitalization)
  Sender: FDA-Public Use
  Company Number: None

PATIENT
  Age: 89 Year
  Sex: Female

DRUGS (11)
  1. SOTALOL. [Concomitant]
     Active Substance: SOTALOL
  2. TRICOR [Concomitant]
     Active Substance: FENOFIBRATE
  3. FOLIC ACID. [Concomitant]
     Active Substance: FOLIC ACID
  4. LANOXIN [Concomitant]
     Active Substance: DIGOXIN
  5. LOVASTATIN. [Concomitant]
     Active Substance: LOVASTATIN
  6. VERAPAMIL [Concomitant]
     Active Substance: VERAPAMIL HYDROCHLORIDE
  7. ZYRTEC [Concomitant]
     Active Substance: CETIRIZINE HYDROCHLORIDE
  8. TACROLIMUS 1MG CAP [Suspect]
     Active Substance: TACROLIMUS
     Indication: LIVER TRANSPLANT
     Route: 048
     Dates: start: 20180829
  9. INSULIN [Concomitant]
     Active Substance: INSULIN NOS
  10. ALENDRONATE [Concomitant]
     Active Substance: ALENDRONATE SODIUM
  11. PLAVIX [Concomitant]
     Active Substance: CLOPIDOGREL BISULFATE

REACTIONS (4)
  - Productive cough [None]
  - Pneumonia [None]
  - Cough [None]
  - Influenza [None]

NARRATIVE: CASE EVENT DATE: 2019
